FAERS Safety Report 25277976 (Version 1)
Quarter: 2025Q2

REPORT INFORMATION
  Report Type: Report from Study
  Country: US (occurrence: US)
  Receive Date: 20250507
  Receipt Date: 20250507
  Transmission Date: 20250716
  Serious: Yes (Other)
  Sender: ABBVIE
  Company Number: US-ABBVIE-6267048

PATIENT
  Age: 71 Year
  Sex: Female

DRUGS (1)
  1. VIBERZI [Suspect]
     Active Substance: ELUXADOLINE
     Indication: Product used for unknown indication
     Route: 065
     Dates: start: 20240509, end: 20250101

REACTIONS (3)
  - Dental operation [Not Recovered/Not Resolved]
  - Fall [Not Recovered/Not Resolved]
  - Craniofacial fracture [Not Recovered/Not Resolved]

NARRATIVE: CASE EVENT DATE: 20250428
